FAERS Safety Report 23094329 (Version 1)
Quarter: 2023Q4

REPORT INFORMATION
  Report Type: Spontaneous
  Country: CA (occurrence: CA)
  Receive Date: 20231023
  Receipt Date: 20231023
  Transmission Date: 20240110
  Serious: Yes (Death, Other)
  Sender: FDA-Public Use
  Company Number: CA-MACLEODS PHARMACEUTICALS US LTD-MAC2023043933

PATIENT

DRUGS (9)
  1. VENLAFAXINE [Suspect]
     Active Substance: VENLAFAXINE HYDROCHLORIDE
     Indication: Anxiety
     Dosage: UNK,TITRATED UP TO 150 MG DAILY OVER A FEW MONTHS
     Route: 065
  2. VENLAFAXINE [Suspect]
     Active Substance: VENLAFAXINE HYDROCHLORIDE
     Dosage: 150 MILLIGRAM, QD ,TITRATED UP TO 150 MG DAILY OVER A FEW MONTHS
     Route: 065
  3. CARBIDOPA\LEVODOPA [Concomitant]
     Active Substance: CARBIDOPA\LEVODOPA
     Indication: Parkinson^s disease
     Dosage: 1.5 DOSAGE FORM, QID
     Route: 065
  4. CARBIDOPA\LEVODOPA [Concomitant]
     Active Substance: CARBIDOPA\LEVODOPA
     Dosage: 1 DOSAGE FORM, TID
     Route: 065
  5. ROTIGOTINE [Concomitant]
     Active Substance: ROTIGOTINE
     Indication: Parkinson^s disease
     Dosage: 2 MILLIGRAM, QD
     Route: 065
  6. ROTIGOTINE [Concomitant]
     Active Substance: ROTIGOTINE
     Dosage: 4 MILLIGRAM, QD
     Route: 065
  7. ROTIGOTINE [Concomitant]
     Active Substance: ROTIGOTINE
     Dosage: 8 MILLIGRAM, QD
     Route: 065
  8. ROTIGOTINE [Concomitant]
     Active Substance: ROTIGOTINE
     Dosage: 6 MILLIGRAM, QD
     Route: 065
  9. RASAGILINE [Concomitant]
     Active Substance: RASAGILINE
     Indication: Parkinson^s disease
     Dosage: 1 MILLIGRAM, QD
     Route: 065

REACTIONS (2)
  - Completed suicide [Fatal]
  - Erectile dysfunction [Unknown]
